FAERS Safety Report 21567822 (Version 1)
Quarter: 2022Q4

REPORT INFORMATION
  Report Type: Spontaneous
  Country: US (occurrence: US)
  Receive Date: 20221108
  Receipt Date: 20221108
  Transmission Date: 20230112
  Serious: Yes (Other)
  Sender: FDA-Public Use
  Company Number: US-SA-SAC20221103002111

PATIENT
  Age: 88 Year
  Sex: Female

DRUGS (1)
  1. ZANTAC [Suspect]
     Active Substance: RANITIDINE HYDROCHLORIDE
     Dosage: UNKNOWN AT THIS TIME, FREQ: OTHER
     Route: 065
     Dates: start: 201501, end: 202001

REACTIONS (1)
  - Pancreatic carcinoma stage IV [Unknown]

NARRATIVE: CASE EVENT DATE: 20200501
